FAERS Safety Report 8987410 (Version 5)
Quarter: 2014Q1

REPORT INFORMATION
  Report Type: Report from Study
  Country: GB (occurrence: GB)
  Receive Date: 20121226
  Receipt Date: 20140325
  Transmission Date: 20141002
  Serious: Yes (Other)
  Sender: FDA-Public Use
  Company Number: GB-ROCHE-1171598

PATIENT
  Age: 81 Year
  Sex: Female

DRUGS (2)
  1. RANIBIZUMAB [Suspect]
     Indication: PRODUCT USED FOR UNKNOWN INDICATION
     Route: 050
     Dates: start: 20090114
  2. RANIBIZUMAB [Suspect]
     Route: 050
     Dates: start: 20130815

REACTIONS (4)
  - Radius fracture [Recovering/Resolving]
  - Wrist fracture [Unknown]
  - Fall [Recovered/Resolved]
  - Vision blurred [Recovered/Resolved]
